FAERS Safety Report 19205185 (Version 3)
Quarter: 2022Q2

REPORT INFORMATION
  Report Type: Other
  Country: CA (occurrence: CA)
  Receive Date: 20210503
  Receipt Date: 20220523
  Transmission Date: 20220720
  Serious: Yes (Other)
  Sender: FDA-Public Use
  Company Number: CA-APOTEX-2021AP010355

PATIENT
  Sex: Female

DRUGS (21)
  1. HYDROXYCHLOROQUINE [Suspect]
     Active Substance: HYDROXYCHLOROQUINE
     Indication: Rheumatoid arthritis
     Dosage: UNK
     Route: 065
  2. LEFLUNOMIDE [Suspect]
     Active Substance: LEFLUNOMIDE
     Indication: Rheumatoid arthritis
     Dosage: UNK
     Route: 065
  3. METHOTREXATE [Suspect]
     Active Substance: METHOTREXATE
     Indication: Rheumatoid arthritis
     Dosage: 17.5 MILLIGRAM
     Route: 065
  4. METHOTREXATE [Suspect]
     Active Substance: METHOTREXATE
     Dosage: UNK TOTAL
     Route: 065
  5. MELOXICAM [Suspect]
     Active Substance: MELOXICAM
     Indication: Rheumatoid arthritis
     Dosage: UNK
     Route: 065
  6. ACTEMRA [Suspect]
     Active Substance: TOCILIZUMAB
     Indication: Rheumatoid arthritis
     Dosage: 160 MILLIGRAM, Q.WK.
     Route: 058
  7. ACTEMRA [Suspect]
     Active Substance: TOCILIZUMAB
     Dosage: 160 MILLIGRAM
     Route: 058
  8. SULFASALAZINE [Suspect]
     Active Substance: SULFASALAZINE
     Indication: Product used for unknown indication
     Dosage: UNK (FREQUENCY TOTAL)
     Route: 065
  9. ARAVA [Suspect]
     Active Substance: LEFLUNOMIDE
     Indication: Product used for unknown indication
     Dosage: UNK
     Route: 065
  10. ENBREL [Suspect]
     Active Substance: ETANERCEPT
     Indication: Rheumatoid arthritis
     Dosage: UNK
     Route: 065
  11. MELOXICAM [Suspect]
     Active Substance: MELOXICAM
     Indication: Product used for unknown indication
     Dosage: UNK
     Route: 065
  12. ORENCIA [Suspect]
     Active Substance: ABATACEPT
     Indication: Rheumatoid arthritis
     Dosage: 750 MILLIGRAM
     Route: 042
  13. PLAQUENIL [Suspect]
     Active Substance: HYDROXYCHLOROQUINE SULFATE
     Indication: Product used for unknown indication
     Dosage: UNK
     Route: 065
  14. RITUXIMAB [Suspect]
     Active Substance: RITUXIMAB
     Indication: Rheumatoid arthritis
     Dosage: UNK
     Route: 042
  15. TOCILIZUMAB [Suspect]
     Active Substance: TOCILIZUMAB
     Indication: Product used for unknown indication
     Dosage: 160 MILLIGRAM
     Route: 058
  16. GOLD [Suspect]
     Active Substance: GOLD
     Indication: Product used for unknown indication
     Dosage: UNK
     Route: 065
  17. DEPO-MEDROL [Concomitant]
     Active Substance: METHYLPREDNISOLONE ACETATE
     Indication: Rheumatoid arthritis
     Dosage: 80 MILLIGRAM, QD
     Route: 014
  18. DICLOFENAC [Concomitant]
     Active Substance: DICLOFENAC
     Indication: Rheumatoid arthritis
     Dosage: UNK
     Route: 065
  19. HUMIRA [Concomitant]
     Active Substance: ADALIMUMAB
     Indication: Rheumatoid arthritis
     Dosage: UNK
     Route: 058
  20. HYDROXYCHLOROQUINE SULFATE [Concomitant]
     Active Substance: HYDROXYCHLOROQUINE SULFATE
     Indication: Rheumatoid arthritis
     Dosage: UNK
     Route: 065
  21. METHYLPREDNISOLONE ACETATE [Concomitant]
     Active Substance: METHYLPREDNISOLONE ACETATE
     Indication: Rheumatoid arthritis
     Dosage: 80 MILLIGRAM, QD
     Route: 030

REACTIONS (49)
  - Allergy to chemicals [Unknown]
  - Arthralgia [Unknown]
  - Bone density decreased [Unknown]
  - C-reactive protein increased [Unknown]
  - Crepitations [Unknown]
  - Deformity [Unknown]
  - Drug intolerance [Unknown]
  - Dry eye [Unknown]
  - Fatigue [Unknown]
  - Feeling abnormal [Unknown]
  - Fibromyalgia [Unknown]
  - Hand deformity [Unknown]
  - Joint range of motion decreased [Unknown]
  - Joint swelling [Unknown]
  - Liver disorder [Unknown]
  - Malaise [Unknown]
  - Muscular weakness [Unknown]
  - Musculoskeletal pain [Unknown]
  - Musculoskeletal stiffness [Unknown]
  - Myalgia [Unknown]
  - Off label use [Unknown]
  - Pain in extremity [Unknown]
  - Peripheral swelling [Unknown]
  - Pulmonary toxicity [Unknown]
  - Rash maculo-papular [Unknown]
  - Rash pruritic [Unknown]
  - Rheumatoid arthritis [Unknown]
  - Rheumatoid nodule [Unknown]
  - Synovial cyst [Not Recovered/Not Resolved]
  - Tenosynovitis [Not Recovered/Not Resolved]
  - Cataract [Unknown]
  - Diabetes mellitus [Unknown]
  - Head titubation [Unknown]
  - Ill-defined disorder [Unknown]
  - Neuralgia [Unknown]
  - Traumatic lung injury [Unknown]
  - Contraindicated product administered [Unknown]
  - Mobility decreased [Unknown]
  - Pain [Unknown]
  - Rheumatoid lung [Unknown]
  - Synovitis [Unknown]
  - Viral upper respiratory tract infection [Unknown]
  - Upper respiratory tract infection [Unknown]
  - Tremor [Unknown]
  - Diarrhoea [Unknown]
  - Dizziness [Unknown]
  - White blood cell count decreased [Unknown]
  - Drug ineffective [Unknown]
  - Therapeutic product effect decreased [Unknown]
